FAERS Safety Report 23574979 (Version 5)
Quarter: 2025Q1

REPORT INFORMATION
  Report Type: Spontaneous
  Country: US (occurrence: US)
  Receive Date: 20240228
  Receipt Date: 20250210
  Transmission Date: 20250408
  Serious: No
  Sender: SANOFI AVENTIS
  Company Number: US-SA-SAC20240221000926

PATIENT
  Age: 9 Month
  Sex: Male

DRUGS (3)
  1. DUPIXENT [Suspect]
     Active Substance: DUPILUMAB
     Indication: Eczema infantile
     Dosage: 200 MG, QM
     Route: 058
     Dates: start: 2024
  2. DUPIXENT [Suspect]
     Active Substance: DUPILUMAB
     Dosage: 200MG, Q4W
     Route: 058
     Dates: start: 202201
  3. MEASLES-MUMPS-RUBELLA VIRUS VACCINE [Suspect]
     Active Substance: MEASLES-MUMPS-RUBELLA VIRUS VACCINE
     Indication: Immunisation
     Dates: start: 20240515

REACTIONS (22)
  - Sleep disorder due to a general medical condition [Unknown]
  - Speech disorder developmental [Unknown]
  - Gait disturbance [Unknown]
  - Lethargy [Not Recovered/Not Resolved]
  - Feeling hot [Not Recovered/Not Resolved]
  - Dry eye [Unknown]
  - Dry skin [Recovered/Resolved]
  - Pruritus [Recovered/Resolved]
  - Therapeutic response shortened [Unknown]
  - Eczema [Unknown]
  - Erythema [Unknown]
  - Rash [Recovered/Resolved]
  - Pruritus [Unknown]
  - Skin swelling [Unknown]
  - Skin haemorrhage [Unknown]
  - Skin weeping [Unknown]
  - Skin fissures [Unknown]
  - Dry skin [Unknown]
  - Skin exfoliation [Unknown]
  - Infection [Unknown]
  - Sneezing [Unknown]
  - Fatigue [Unknown]

NARRATIVE: CASE EVENT DATE: 20240220
